FAERS Safety Report 21796171 (Version 1)
Quarter: 2022Q4

REPORT INFORMATION
  Report Type: Spontaneous
  Country: US (occurrence: None)
  Receive Date: 20221228
  Receipt Date: 20221228
  Transmission Date: 20230113
  Serious: No
  Sender: FDA-Public Use
  Company Number: None

PATIENT
  Sex: Female

DRUGS (1)
  1. STELARA [Suspect]
     Active Substance: USTEKINUMAB
     Indication: Inflammatory bowel disease
     Dosage: 90MG/1ML 1 EVERY 8 WKS INJECTION?
     Dates: start: 20220928

REACTIONS (5)
  - Drug ineffective [None]
  - Pain [None]
  - Haemorrhage [None]
  - Defaecation urgency [None]
  - Muscle spasms [None]
